FAERS Safety Report 12155092 (Version 1)
Quarter: 2016Q1

REPORT INFORMATION
  Report Type: Spontaneous
  Country: US (occurrence: None)
  Receive Date: 20160304
  Receipt Date: 20160304
  Transmission Date: 20160526
  Serious: Yes (Life-Threatening, Hospitalization, Other)
  Sender: FDA-Public Use
  Company Number: None

PATIENT
  Age: 79 Year
  Sex: Male
  Weight: 108.2 kg

DRUGS (1)
  1. ALOGLIPTIN/METFORMIN 12.5/10 [Suspect]
     Active Substance: ALOGLIPTIN BENZOATE\METFORMIN HYDROCHLORIDE
     Indication: DIABETES MELLITUS
     Dosage: ALOGLIPTIN/METFORMIN 12.5/10 BID PO
     Route: 048

REACTIONS (3)
  - Pancreatitis [None]
  - Cholelithiasis [None]
  - Pancreatitis haemorrhagic [None]

NARRATIVE: CASE EVENT DATE: 20160228
